FAERS Safety Report 6959671-8 (Version None)
Quarter: 2010Q3

REPORT INFORMATION
  Report Type: 
  Country: None (occurrence: None)
  Receive Date: 20100823
  Receipt Date: 20100720
  Transmission Date: 20110219
  Serious: No
  Sender: FDA-Public Use
  Company Number: 016129

PATIENT
  Sex: Female
  Weight: 65.8 kg

DRUGS (2)
  1. CIMZIA [Suspect]
     Indication: CROHN'S DISEASE
     Dosage: (400 MG 1X/MONTH SUBCUTANEOUS)
     Route: 058
     Dates: start: 20100101
  2. NIFEDIPINE [Suspect]
     Indication: CROHN'S DISEASE
     Dosage: (0.4 % BID TOPICAL)
     Route: 061
     Dates: start: 20100420

REACTIONS (5)
  - ABSCESS [None]
  - COUGH [None]
  - DIZZINESS [None]
  - PILOERECTION [None]
  - RASH [None]
